FAERS Safety Report 19326479 (Version 2)
Quarter: 2022Q1

REPORT INFORMATION
  Report Type: Spontaneous
  Country: US (occurrence: US)
  Receive Date: 20210528
  Receipt Date: 20220121
  Transmission Date: 20220423
  Serious: No
  Sender: FDA-Public Use
  Company Number: US-PFIZER INC-2021264159

PATIENT
  Age: 16 Month
  Sex: Male
  Weight: 9.98 kg

DRUGS (2)
  1. SOMATROPIN [Suspect]
     Active Substance: SOMATROPIN
     Dosage: 0.2 MG
     Route: 058
  2. SOMATROPIN [Suspect]
     Active Substance: SOMATROPIN
     Dosage: 0.4 MG, 1X/DAY (EVERY NIGHT BEFORE BED AT RIGHT/LEFT THIGH OR RIGHT/LEFT BUTT ALTERNATE)
     Route: 058
     Dates: start: 2019

REACTIONS (3)
  - Drug dose omission by device [Unknown]
  - Device breakage [Unknown]
  - Device leakage [Unknown]

NARRATIVE: CASE EVENT DATE: 20210303
